FAERS Safety Report 24291122 (Version 1)
Quarter: 2024Q3

REPORT INFORMATION
  Report Type: Other
  Country: DE (occurrence: DE)
  Receive Date: 20240906
  Receipt Date: 20240906
  Transmission Date: 20241017
  Serious: Yes (Disabling, Congenital Anomaly, Other)
  Sender: LUPIN
  Company Number: DE-EMBRYOTOX-202310245

PATIENT

DRUGS (5)
  1. LEVETIRACETAM [Suspect]
     Active Substance: LEVETIRACETAM
     Indication: Epilepsy
     Dosage: 2000 MILLIGRAM, QD, UNTIL GW 8
     Route: 064
     Dates: start: 20230311
  2. LEVETIRACETAM [Suspect]
     Active Substance: LEVETIRACETAM
     Dosage: 5000 MILLIGRAM, QD, THEN INCREASED TO 2 X 2500 MG/D
     Route: 064
  3. LAMOTRIGINE [Suspect]
     Active Substance: LAMOTRIGINE
     Indication: Epilepsy
     Dosage: UNK UNK, BID, 50-0-100 MILLIGRAMS/DAY UNTIL 8 GW
     Route: 064
     Dates: start: 20230311
  4. LAMOTRIGINE [Suspect]
     Active Substance: LAMOTRIGINE
     Dosage: 400 MILLIGRAM, QD, THEN INCREASED TO 2X200 MG/D
     Route: 064
  5. FOLIC ACID [Concomitant]
     Active Substance: FOLIC ACID
     Indication: Prophylaxis of neural tube defect
     Dosage: UNK, 0.- 38.5 GESTATIONAL WEEK
     Route: 064
     Dates: start: 20230311, end: 20231207

REACTIONS (2)
  - Limb reduction defect [Unknown]
  - Foetal exposure during pregnancy [Unknown]

NARRATIVE: CASE EVENT DATE: 20231201
